FAERS Safety Report 25246837 (Version 2)
Quarter: 2025Q2

REPORT INFORMATION
  Report Type: Spontaneous
  Country: US (occurrence: US)
  Receive Date: 20250428
  Receipt Date: 20250429
  Transmission Date: 20250717
  Serious: No
  Sender: BIOGEN
  Company Number: US-BIOGEN-2025BI01295935

PATIENT
  Age: 31 Year
  Sex: Female

DRUGS (3)
  1. VUMERITY [Suspect]
     Active Substance: DIROXIMEL FUMARATE
     Indication: Multiple sclerosis
     Dosage: TAKE 2 CAPSULES BY MOUTH IN THE MORNING AND 2 CAPSULES BEFORE BEDTIME.
     Route: 050
     Dates: start: 20240806
  2. D3-5 [Concomitant]
     Route: 050
  3. IRON [Concomitant]
     Active Substance: IRON
     Route: 050

REACTIONS (7)
  - Extra dose administered [Not Recovered/Not Resolved]
  - Product dose omission in error [Unknown]
  - Product dose omission issue [Unknown]
  - Lymphocyte count decreased [Unknown]
  - Aspartate aminotransferase increased [Unknown]
  - Alanine aminotransferase increased [Unknown]
  - Flushing [Recovered/Resolved]

NARRATIVE: CASE EVENT DATE: 20241201
